FAERS Safety Report 7003525-8 (Version None)
Quarter: 2010Q3

REPORT INFORMATION
  Report Type: 
  Country: None (occurrence: None)
  Receive Date: 20100916
  Receipt Date: 20100831
  Transmission Date: 20110219
  Serious: Yes (Death, Hospitalization, Other)
  Sender: FDA-Public Use
  Company Number: 2009003926

PATIENT
  Age: 82 Year
  Sex: Male

DRUGS (17)
  1. ERLOTINIB HYDROCHLORIDE [Suspect]
     Indication: HEPATIC NEOPLASM MALIGNANT NON-RESECTABLE
     Dosage: (150 MG, QD), ORAL
     Route: 048
     Dates: start: 20091120, end: 20091210
  2. SORAFENIB [Suspect]
     Indication: HEPATIC NEOPLASM MALIGNANT NON-RESECTABLE
     Dosage: (800 MG, QD), ORAL
     Route: 048
     Dates: start: 20091120, end: 20091210
  3. PIPERACILLIN AND TAZOBACTAM [Concomitant]
  4. FLUCONAZOLE [Concomitant]
  5. SODIUM CHLORIDE [Concomitant]
  6. SODIUM CHLORIDE [Concomitant]
  7. ALLOPURINOL [Concomitant]
  8. ASPIRIN [Concomitant]
  9. CANDESARTAN CILEXETIL [Concomitant]
  10. BISOPROLOL [Concomitant]
  11. SIMVASTATIN [Concomitant]
  12. ACETAMINOPHEN [Concomitant]
  13. FUCIDIN H OINTMENT (FUSIDATE SODIUM) [Concomitant]
  14. FORTISIP [Concomitant]
  15. FUSIDIC ACID [Concomitant]
  16. MUPIROCIN [Concomitant]
  17. DERMOL SOL [Concomitant]

REACTIONS (9)
  - DECREASED APPETITE [None]
  - DIARRHOEA [None]
  - FATIGUE [None]
  - IMPETIGO [None]
  - MALAISE [None]
  - MALIGNANT NEOPLASM PROGRESSION [None]
  - MOUTH ULCERATION [None]
  - ORAL CANDIDIASIS [None]
  - RASH [None]
